FAERS Safety Report 9954411 (Version 1)
Quarter: 2014Q1

REPORT INFORMATION
  Report Type: Spontaneous
  Country: US (occurrence: US)
  Receive Date: 20140304
  Receipt Date: 20140304
  Transmission Date: 20141002
  Serious: Yes (Other)
  Sender: FDA-Public Use
  Company Number: PHHY2014US023829

PATIENT
  Age: 77 Year
  Sex: Male

DRUGS (6)
  1. BORTEZOMIB [Suspect]
     Indication: AMYLOIDOSIS
     Dosage: 1.5 MG/M2
  2. PREDNISONE [Suspect]
     Indication: AMYLOIDOSIS
     Dosage: 60 MG, UNK
  3. PREDNISONE [Suspect]
     Dosage: 30 MG, UNK
  4. DEXAMETHASONE [Suspect]
     Indication: AMYLOIDOSIS
     Dosage: 20 MG, UNK
  5. MELPHALAN [Suspect]
     Indication: AMYLOIDOSIS
     Dosage: 10 MG, UNK
     Route: 042
  6. THALIDOMIDE [Suspect]
     Indication: AMYLOIDOSIS
     Dosage: 100 MG, UNK

REACTIONS (2)
  - Toxicity to various agents [Unknown]
  - Drug effect incomplete [Unknown]
